FAERS Safety Report 15017090 (Version 1)
Quarter: 2018Q2

REPORT INFORMATION
  Report Type: Spontaneous
  Country: US (occurrence: US)
  Receive Date: 20180615
  Receipt Date: 20180615
  Transmission Date: 20180711
  Serious: No
  Sender: FDA-Public Use
  Company Number: US-ELI_LILLY_AND_COMPANY-US201805009214

PATIENT
  Sex: Female

DRUGS (4)
  1. HUMULIN R [Suspect]
     Active Substance: INSULIN HUMAN
     Indication: DIABETES MELLITUS
     Dosage: UNK, UNKNOWN
     Route: 065
  2. NOVOLIN [Concomitant]
     Active Substance: INSULIN HUMAN
     Indication: PRODUCT USED FOR UNKNOWN INDICATION
     Dosage: 17 U, EACH MORNING
     Route: 065
  3. NOVOLIN [Concomitant]
     Active Substance: INSULIN HUMAN
     Dosage: 14 U, DAILY, AT NIGHT
     Route: 065
  4. NOVOLIN [Concomitant]
     Active Substance: INSULIN HUMAN
     Dosage: 12 U, DAILY, AT LUNCH
     Route: 065

REACTIONS (2)
  - Maternal exposure during pregnancy [Unknown]
  - Blood glucose increased [Recovering/Resolving]
